FAERS Safety Report 16962139 (Version 1)
Quarter: 2019Q4

REPORT INFORMATION
  Report Type: Spontaneous
  Country: DE (occurrence: DE)
  Receive Date: 20191025
  Receipt Date: 20191025
  Transmission Date: 20200122
  Serious: Yes (Other)
  Sender: FDA-Public Use
  Company Number: DE-JNJFOC-20191029982

PATIENT
  Sex: Female
  Weight: 85 kg

DRUGS (1)
  1. REGAINE WOMAN 2% PR-008381 [Suspect]
     Active Substance: MINOXIDIL
     Indication: ALOPECIA
     Dosage: 3 HUBS EVERY TIME TWO TIMES A DAY
     Route: 061

REACTIONS (7)
  - Off label use [Unknown]
  - Malaise [Recovered/Resolved]
  - Syncope [Recovered/Resolved]
  - Headache [Recovered/Resolved]
  - Product use in unapproved indication [Unknown]
  - Nausea [Recovered/Resolved]
  - Dizziness [Recovered/Resolved]
